FAERS Safety Report 9829742 (Version 3)
Quarter: 2014Q1

REPORT INFORMATION
  Report Type: Spontaneous
  Country: JP (occurrence: JP)
  Receive Date: 20140120
  Receipt Date: 20140207
  Transmission Date: 20141002
  Serious: Yes (Hospitalization, Other)
  Sender: FDA-Public Use
  Company Number: JP-BRISTOL-MYERS SQUIBB COMPANY-19923580

PATIENT
  Age: 74 Year
  Sex: Male
  Weight: 77.5 kg

DRUGS (2)
  1. ELIQUIS [Suspect]
     Indication: CEREBROVASCULAR ACCIDENT PROPHYLAXIS
     Dosage: 28NOV13-11DEC2013?TABS;RESTARTED :DOSE 5MG X 2/DAY
     Route: 048
     Dates: start: 20131128
  2. GASTER D [Concomitant]
     Indication: PROPHYLAXIS
     Dosage: TABS
     Route: 048
     Dates: start: 20131119

REACTIONS (2)
  - Melaena [Recovered/Resolved]
  - Rectal ulcer [Unknown]
